FAERS Safety Report 7390632-3 (Version None)
Quarter: 2011Q2

REPORT INFORMATION
  Report Type: 
  Country: None (occurrence: None)
  Receive Date: 20110404
  Receipt Date: 20110324
  Transmission Date: 20111010
  Serious: Yes (Other)
  Sender: FDA-Public Use
  Company Number: RU-BIOGENIDEC-2011BI011705

PATIENT
  Age: 32 Year
  Sex: Male

DRUGS (1)
  1. AVONEX [Suspect]
     Route: 030
     Dates: start: 20100901

REACTIONS (3)
  - INFLUENZA LIKE ILLNESS [None]
  - FALL [None]
  - COORDINATION ABNORMAL [None]
